FAERS Safety Report 8607168 (Version 2)
Quarter: 2013Q3

REPORT INFORMATION
  Report Type: Spontaneous
  Country: US (occurrence: US)
  Receive Date: 20120611
  Receipt Date: 20130911
  Transmission Date: 20140515
  Serious: Yes (Disabling, Other)
  Sender: FDA-Public Use
  Company Number: US-ASTRAZENECA-2012SE36139

PATIENT
  Age: 65 Year
  Sex: Female
  Weight: 59 kg

DRUGS (14)
  1. NEXIUM [Suspect]
     Indication: GASTROOESOPHAGEAL REFLUX DISEASE
     Route: 048
     Dates: start: 2001, end: 2010
  2. PEPCID [Concomitant]
     Dates: start: 2011
  3. MILK OF MAGNESIA [Concomitant]
     Dosage: NOT OFTEN, TAKEN AS INSTRUCTED
  4. PRINZIDE [Concomitant]
  5. LISINOPRIL [Concomitant]
  6. ZOCOR [Concomitant]
  7. CRESTOR [Concomitant]
  8. PLAVIX [Concomitant]
  9. SYNTHROID [Concomitant]
  10. ALPRAZOLAM [Concomitant]
  11. HYDROCODONE [Concomitant]
  12. CALTRATE [Concomitant]
  13. CALCIUM [Concomitant]
  14. VITAMIN D [Concomitant]

REACTIONS (6)
  - Cerebrovascular accident [Unknown]
  - Depression [Unknown]
  - Osteoporosis [Unknown]
  - Multiple fractures [Unknown]
  - Ankle fracture [Unknown]
  - Cataract [Unknown]
